FAERS Safety Report 18899837 (Version 1)
Quarter: 2021Q1

REPORT INFORMATION
  Report Type: Spontaneous
  Country: CN (occurrence: CN)
  Receive Date: 20210216
  Receipt Date: 20210216
  Transmission Date: 20210420
  Serious: Yes (Hospitalization, Other)
  Sender: FDA-Public Use
  Company Number: CN-BAXTER-2021BAX002730

PATIENT
  Age: 70 Year
  Sex: Male
  Weight: 70 kg

DRUGS (7)
  1. VINDESINE SULFATE [Suspect]
     Active Substance: VINDESINE SULFATE
     Indication: LYMPHOMA
     Dosage: DAY 1, VINDESINE SULFATE 4 MG + 0.9% SODIUM CHLORIDE 100 ML, Q21D
     Route: 041
     Dates: start: 20210121, end: 20210121
  2. ENDOXAN [Suspect]
     Active Substance: CYCLOPHOSPHAMIDE
     Indication: LYMPHOMA
     Dosage: DAY 1, ENDOXAN 1200 MG + 0.9% SODIUM CHLORIDE 100 ML, Q21D
     Route: 041
     Dates: start: 20210121, end: 20210121
  3. 0.9% SODIUM CHLORIDE INJECTION [Suspect]
     Active Substance: SODIUM CHLORIDE
     Indication: MEDICATION DILUTION
     Dosage: DAY1, 0.9% SODIUM CHLORIDE 100 ML + ENDOXAN 1200 MG, Q21D
     Route: 041
     Dates: start: 20210121, end: 20210121
  4. 0.9% SODIUM CHLORIDE INJECTION [Suspect]
     Active Substance: SODIUM CHLORIDE
     Dosage: DAY 1, 0.9% SODIUM CHLORIDE 100 ML + VINDESINE SULFATE 4 MG, Q21D
     Route: 041
     Dates: start: 20210121, end: 20210121
  5. PIRARUBICIN HYDROCHLORIDE [Suspect]
     Active Substance: PIRARUBICIN HYDROCHLORIDE
     Indication: LYMPHOMA
     Dosage: DAY 1, PIRARUBICIN HYDROCHLORIDE 100 MG + 5% GLUCOSE 100 ML
     Route: 041
     Dates: start: 20210121, end: 20210121
  6. PREDNISONE ACETATE [Suspect]
     Active Substance: PREDNISONE ACETATE
     Indication: LYMPHOMA
     Dosage: DOSAGE FORM: TABLET, DAY 1 TO DAY 5, Q21D
     Route: 048
     Dates: start: 20210121, end: 20210125
  7. 5% GLUCOSE  INJECTION [Suspect]
     Active Substance: DEXTROSE
     Indication: MEDICATION DILUTION
     Dosage: DAY 1, 5% GLUCOSE 100 ML + PIRARUBICIN HYDROCHLORIDE 100 MG, Q21D
     Route: 041
     Dates: start: 20210121, end: 20210121

REACTIONS (3)
  - Myelosuppression [Recovering/Resolving]
  - Asthma [Unknown]
  - Diarrhoea [Unknown]

NARRATIVE: CASE EVENT DATE: 20210129
